FAERS Safety Report 9174977 (Version 1)
Quarter: 2013Q1

REPORT INFORMATION
  Report Type: Spontaneous
  Country: CZ (occurrence: None)
  Receive Date: 20130315
  Receipt Date: 20130315
  Transmission Date: 20140127
  Serious: Yes (Other)
  Sender: FDA-Public Use
  Company Number: SYM-2013-01544

PATIENT
  Age: 70 Year
  Sex: Male

DRUGS (1)
  1. FLUROURACIL (FLUROURACIL) (FLUROURACIL) [Suspect]
     Indication: GASTRIC CANCER
     Dosage: INTRAVENOUS (NOT OTHERWISE SPECIFIED)?

REACTIONS (3)
  - Neutropenia [None]
  - Diarrhoea [None]
  - Mucosal inflammation [None]
